FAERS Safety Report 15656580 (Version 1)
Quarter: 2018Q4

REPORT INFORMATION
  Report Type: Report from Study
  Country: US (occurrence: US)
  Receive Date: 20181126
  Receipt Date: 20181126
  Transmission Date: 20190205
  Serious: No
  Sender: FDA-Public Use
  Company Number: PHEH2018US049935

PATIENT
  Age: 54 Year
  Sex: Female

DRUGS (1)
  1. GILENYA [Suspect]
     Active Substance: FINGOLIMOD HYDROCHLORIDE
     Indication: MULTIPLE SCLEROSIS
     Dosage: 0.5 MG, QD
     Route: 048
     Dates: start: 2001

REACTIONS (6)
  - Depression [Unknown]
  - Pain in extremity [Unknown]
  - Asthenia [Unknown]
  - Erythema [Unknown]
  - Gait inability [Unknown]
  - Rash papular [Unknown]

NARRATIVE: CASE EVENT DATE: 20181114
